FAERS Safety Report 5401418-0 (Version None)
Quarter: 2007Q3

REPORT INFORMATION
  Report Type: 
  Country: None (occurrence: None)
  Receive Date: 20070731
  Receipt Date: 20070726
  Transmission Date: 20080115
  Serious: Yes (Other)
  Sender: FDA-Public Use
  Company Number: US-MERCK-0707USA04543

PATIENT
  Age: 79 Year
  Sex: Female

DRUGS (4)
  1. PRINIVIL [Suspect]
     Route: 048
  2. GLUCOPHAGE [Suspect]
     Route: 065
  3. DIGITEK [Suspect]
     Route: 065
  4. ECOTRIN [Suspect]
     Route: 065

REACTIONS (1)
  - BLOOD PRESSURE INCREASED [None]
